FAERS Safety Report 5657610-3 (Version None)
Quarter: 2008Q1

REPORT INFORMATION
  Report Type: 
  Country: None (occurrence: None)
  Receive Date: 20080310
  Receipt Date: 20080227
  Transmission Date: 20080703
  Serious: Yes (Other)
  Sender: FDA-Public Use
  Company Number: FR-PFIZER INC-2008021189

PATIENT
  Age: 55 Year
  Sex: Male

DRUGS (5)
  1. NELFINAVIR MESILATE [Suspect]
     Indication: HIV INFECTION
     Dates: start: 20050127, end: 20050304
  2. RIBAVIRIN [Concomitant]
     Dates: start: 20040625
  3. PEGASYS [Concomitant]
     Dates: start: 20040625
  4. TENOFOVIR [Concomitant]
  5. LAMIVUDINE [Concomitant]

REACTIONS (2)
  - HEPATIC FAILURE [None]
  - HEPATOTOXICITY [None]
